FAERS Safety Report 15073585 (Version 1)
Quarter: 2018Q2

REPORT INFORMATION
  Report Type: Spontaneous
  Country: TH (occurrence: TH)
  Receive Date: 20180627
  Receipt Date: 20180627
  Transmission Date: 20180711
  Serious: Yes (Death, Other)
  Sender: FDA-Public Use
  Company Number: PHHY2018TH029983

PATIENT
  Age: 69 Year
  Sex: Female

DRUGS (4)
  1. AFINITOR [Suspect]
     Active Substance: EVEROLIMUS
     Indication: BREAST CANCER
     Dosage: 10 MG, QD
     Route: 065
  2. LETROZOLE. [Suspect]
     Active Substance: LETROZOLE
     Indication: BREAST CANCER
     Dosage: UNK
     Route: 065
     Dates: start: 20150224
  3. EXEMESTANE. [Suspect]
     Active Substance: EXEMESTANE
     Indication: BREAST CANCER
     Dosage: 25 MG, QD
     Route: 065
  4. ZOMETA [Suspect]
     Active Substance: ZOLEDRONIC ACID
     Indication: BREAST CANCER
     Dosage: 4 MG, UNK
     Route: 042

REACTIONS (11)
  - Chest discomfort [Fatal]
  - Metastases to bone [Fatal]
  - Second primary malignancy [Fatal]
  - Metastases to lung [Fatal]
  - Metastases to liver [Fatal]
  - Metastases to the mediastinum [Fatal]
  - Malignant neoplasm progression [Fatal]
  - Intraductal papillary-mucinous carcinoma of pancreas [Unknown]
  - Pleural effusion [Unknown]
  - Neoplasm progression [Fatal]
  - Osteolysis [Fatal]

NARRATIVE: CASE EVENT DATE: 20151118
